FAERS Safety Report 6078302-5 (Version None)
Quarter: 2009Q1

REPORT INFORMATION
  Report Type: 
  Country: None (occurrence: None)
  Receive Date: 20090213
  Receipt Date: 20041014
  Transmission Date: 20090719
  Serious: Yes (Other)
  Sender: FDA-Public Use
  Company Number: NL-GENENTECH-209660

PATIENT
  Sex: Female
  Weight: 96 kg

DRUGS (1)
  1. RITUXIMAB [Suspect]
     Indication: SJOGREN'S SYNDROME
     Dosage: 800 MG, 1/WEEK
     Route: 042
     Dates: start: 20040621

REACTIONS (5)
  - ARTHRITIS [None]
  - MYALGIA [None]
  - PAROTITIS [None]
  - PURPURA [None]
  - SERUM SICKNESS [None]
